FAERS Safety Report 7241018-3 (Version None)
Quarter: 2011Q1

REPORT INFORMATION
  Report Type: 
  Country: None (occurrence: None)
  Receive Date: 20110124
  Receipt Date: 20110114
  Transmission Date: 20110831
  Serious: Yes (Other)
  Sender: FDA-Public Use
  Company Number: PHHY2010US75243

PATIENT
  Sex: Female
  Weight: 45 kg

DRUGS (8)
  1. CILOSTAZOL [Concomitant]
     Dosage: UNK
  2. CLONAZEPAM [Concomitant]
     Dosage: UNK
  3. HYDROCODONE BITARTRATE + IBUPROFEN [Concomitant]
     Dosage: UNK
  4. EXJADE [Suspect]
     Indication: MYELODYSPLASTIC SYNDROME
     Dosage: 250 MG, DAILY
     Route: 048
     Dates: start: 20100909
  5. EXJADE [Suspect]
     Indication: IRON METABOLISM DISORDER
  6. ASPIRIN [Concomitant]
     Dosage: UNK
  7. ARANESP [Concomitant]
  8. LEVOTHYROXINE [Concomitant]
     Dosage: UNK

REACTIONS (4)
  - THROMBOSIS [None]
  - ABASIA [None]
  - PARAESTHESIA [None]
  - DIARRHOEA [None]
